FAERS Safety Report 7170440-9 (Version None)
Quarter: 2010Q4

REPORT INFORMATION
  Report Type: 
  Country: None (occurrence: None)
  Receive Date: 20101217
  Receipt Date: 20101203
  Transmission Date: 20110411
  Serious: Yes (Other)
  Sender: FDA-Public Use
  Company Number: US-ROCHE-747957

PATIENT
  Sex: Female

DRUGS (6)
  1. PEGINTERFERON ALFA-2A [Suspect]
     Indication: HEPATITIS C
     Dosage: FORM: PRE-FILLED SYRINGE
     Route: 065
     Dates: start: 20101025
  2. RIBASPHERE [Suspect]
     Indication: HEPATITIS C
     Dosage: IN DIVIDED DOSES
     Route: 065
     Dates: start: 20101025
  3. PROZAC [Concomitant]
     Indication: DEPRESSION
  4. VALIUM [Concomitant]
  5. VITAMIN B-12 [Concomitant]
  6. PRILOSEC [Concomitant]

REACTIONS (19)
  - ASTHENIA [None]
  - BLOOD POTASSIUM INCREASED [None]
  - BLOOD PRESSURE DECREASED [None]
  - DECREASED APPETITE [None]
  - DEHYDRATION [None]
  - DIARRHOEA [None]
  - DYSGEUSIA [None]
  - EYE INFECTION [None]
  - HEPATIC LESION [None]
  - LUNG NEOPLASM [None]
  - MUSCULOSKELETAL PAIN [None]
  - NAUSEA [None]
  - ORAL FUNGAL INFECTION [None]
  - PYREXIA [None]
  - RASH [None]
  - RENAL CYST [None]
  - RHEUMATOID ARTHRITIS [None]
  - SINUSITIS [None]
  - VULVOVAGINAL MYCOTIC INFECTION [None]
